FAERS Safety Report 19801385 (Version 5)
Quarter: 2022Q1

REPORT INFORMATION
  Report Type: Report from Study
  Country: PL (occurrence: PL)
  Receive Date: 20210907
  Receipt Date: 20220103
  Transmission Date: 20220423
  Serious: Yes (Hospitalization)
  Sender: FDA-Public Use
  Company Number: PL-EXELIXIS-XL18421043792

PATIENT
  Age: 69 Year
  Sex: Male
  Weight: 75 kg

DRUGS (10)
  1. CABOZANTINIB [Suspect]
     Active Substance: CABOZANTINIB
     Indication: Hepatocellular carcinoma
     Dosage: 40 MG, QD
     Route: 048
     Dates: start: 20200715
  2. CABOZANTINIB [Suspect]
     Active Substance: CABOZANTINIB
     Dosage: 20 MG, QOD
     Route: 048
     Dates: start: 20210301, end: 20210827
  3. ATEZOLIZUMAB [Suspect]
     Active Substance: ATEZOLIZUMAB
     Indication: Hepatocellular carcinoma
     Dosage: 1200 MG, Q3WEEKS
     Route: 042
     Dates: start: 20200715, end: 20210827
  4. ATEZOLIZUMAB [Suspect]
     Active Substance: ATEZOLIZUMAB
     Dosage: 1200 MG, Q3WEEKS
     Route: 042
     Dates: start: 20210927
  5. RAMIPRIL [Concomitant]
     Active Substance: RAMIPRIL
  6. CONTROLOC [Concomitant]
     Active Substance: PANTOPRAZOLE SODIUM
  7. PROPRANOLOL HYDROCHLORIDE [Concomitant]
     Active Substance: PROPRANOLOL HYDROCHLORIDE
  8. CHOLECALCIFEROL [Concomitant]
     Active Substance: CHOLECALCIFEROL
  9. CALCIUM [Concomitant]
     Active Substance: CALCIUM
  10. ENTECAVIR [Concomitant]
     Active Substance: ENTECAVIR

REACTIONS (1)
  - Gastrointestinal haemorrhage [Recovered/Resolved]

NARRATIVE: CASE EVENT DATE: 20210827
